FAERS Safety Report 21910470 (Version 1)
Quarter: 2023Q1

REPORT INFORMATION
  Report Type: Spontaneous
  Country: SK (occurrence: SK)
  Receive Date: 20230125
  Receipt Date: 20230125
  Transmission Date: 20230417
  Serious: Yes (Other)
  Sender: FDA-Public Use
  Company Number: SK-AMGEN-SVKSP2022212316

PATIENT
  Age: 52 Year
  Sex: Male

DRUGS (14)
  1. OXALIPLATIN [Suspect]
     Active Substance: OXALIPLATIN
     Indication: Colorectal cancer metastatic
     Dosage: UNK
     Route: 065
     Dates: start: 202201, end: 20220215
  2. OXALIPLATIN [Suspect]
     Active Substance: OXALIPLATIN
     Dosage: UNK
     Route: 065
     Dates: start: 202203
  3. OXALIPLATIN [Suspect]
     Active Substance: OXALIPLATIN
     Dosage: STOP DATE: ??-APR-2022 00:00
     Route: 065
     Dates: start: 20220406
  4. OXALIPLATIN [Suspect]
     Active Substance: OXALIPLATIN
     Dosage: UNK
     Route: 065
     Dates: start: 202206
  5. CAPECITABINE [Suspect]
     Active Substance: CAPECITABINE
     Indication: Colorectal cancer metastatic
     Dosage: UNK
     Route: 065
     Dates: start: 202206
  6. LEUCOVORIN [Suspect]
     Active Substance: LEUCOVORIN
     Indication: Colorectal cancer metastatic
     Dosage: UNK
     Route: 065
     Dates: start: 202201, end: 20220215
  7. LEUCOVORIN [Suspect]
     Active Substance: LEUCOVORIN
     Dosage: UNK
     Route: 065
     Dates: end: 202203
  8. LEUCOVORIN [Suspect]
     Active Substance: LEUCOVORIN
     Dosage: STOP DATE: ??-APR-2022 00:00
     Route: 065
     Dates: start: 20220406
  9. PANITUMUMAB [Suspect]
     Active Substance: PANITUMUMAB
     Indication: Colorectal cancer metastatic
     Dosage: 300 MILLIGRAM, BIWEEKLY, 300 MILLIGRAM, Q2WK
     Route: 065
     Dates: start: 202201, end: 20220215
  10. PANITUMUMAB [Suspect]
     Active Substance: PANITUMUMAB
     Dosage: UNK
     Route: 065
     Dates: end: 202203
  11. PANITUMUMAB [Suspect]
     Active Substance: PANITUMUMAB
     Dosage: STOP DATE: ??-APR-2022 00:00
     Route: 065
     Dates: start: 20220419
  12. FLUOROURACIL [Suspect]
     Active Substance: FLUOROURACIL
     Indication: Colorectal cancer metastatic
     Dosage: UNK
     Route: 065
     Dates: start: 202201, end: 20220215
  13. FLUOROURACIL [Suspect]
     Active Substance: FLUOROURACIL
     Dosage: UNK
     Route: 065
     Dates: start: 202203
  14. FLUOROURACIL [Suspect]
     Active Substance: FLUOROURACIL
     Dosage: STOP DATE: ??-APR-2022 00:00
     Route: 065
     Dates: start: 20220406

REACTIONS (6)
  - Rectosigmoid cancer [Unknown]
  - Enterovesical fistula [Unknown]
  - Leukopenia [Unknown]
  - Thrombocytopenia [Unknown]
  - Gastrointestinal wall thickening [Unknown]
  - Bladder hypertrophy [Unknown]

NARRATIVE: CASE EVENT DATE: 20220101
